FAERS Safety Report 9433287 (Version 1)
Quarter: 2013Q3

REPORT INFORMATION
  Report Type: Spontaneous
  Country: US (occurrence: US)
  Receive Date: 20130731
  Receipt Date: 20130731
  Transmission Date: 20140515
  Serious: No
  Sender: FDA-Public Use
  Company Number: US-BAYER-2013-091657

PATIENT
  Age: 18 Year
  Sex: Female

DRUGS (2)
  1. NIFEDIPINE [Suspect]
     Route: 048
  2. DIGOXIN [Concomitant]
     Route: 048

REACTIONS (1)
  - Oedema peripheral [Recovered/Resolved]
